FAERS Safety Report 23902861 (Version 1)
Quarter: 2024Q2

REPORT INFORMATION
  Report Type: Spontaneous
  Country: ES (occurrence: ES)
  Receive Date: 20240527
  Receipt Date: 20240527
  Transmission Date: 20240715
  Serious: Yes (Other)
  Sender: FDA-Public Use
  Company Number: ES-DAIICHI SANKYO EUROPE GMBH-DSE-2024-118475

PATIENT
  Age: 67 Year
  Sex: Female

DRUGS (1)
  1. BEMPEDOIC ACID\EZETIMIBE [Suspect]
     Active Substance: BEMPEDOIC ACID\EZETIMIBE
     Indication: Dyslipidaemia
     Dosage: 180/10 MG
     Route: 048
     Dates: start: 20231212, end: 20240110

REACTIONS (2)
  - Nightmare [Recovered/Resolved]
  - Depression [Recovered/Resolved]

NARRATIVE: CASE EVENT DATE: 20231213
